FAERS Safety Report 15753495 (Version 2)
Quarter: 2018Q4

REPORT INFORMATION
  Report Type: Spontaneous
  Country: US (occurrence: US)
  Receive Date: 20181222
  Receipt Date: 20181222
  Transmission Date: 20190205
  Serious: No
  Sender: FDA-Public Use
  Company Number: US-MALLINCKRODT-T201804105

PATIENT
  Sex: Female
  Weight: 67 kg

DRUGS (2)
  1. FENTANYL TRANSDERMAL SYSTEM [Suspect]
     Active Substance: FENTANYL
     Indication: PAIN
     Dosage: 100 MCG/HR, EVERY 72 HOURS
     Route: 062
     Dates: start: 20171031
  2. OXYCODONE [Suspect]
     Active Substance: OXYCODONE
     Indication: PAIN
     Dosage: 30 MG, QID
     Route: 048
     Dates: start: 20170214, end: 2018

REACTIONS (4)
  - Muscle spasms [Unknown]
  - Therapeutic response shortened [Unknown]
  - Back pain [Unknown]
  - Product adhesion issue [Unknown]
